FAERS Safety Report 21050311 (Version 3)
Quarter: 2022Q3

REPORT INFORMATION
  Report Type: Report from Study
  Country: GB (occurrence: DK)
  Receive Date: 20220707
  Receipt Date: 20220802
  Transmission Date: 20221027
  Serious: Yes (Hospitalization, Other)
  Sender: FDA-Public Use
  Company Number: GB-CELLTRION INC.-2021DK019340

PATIENT

DRUGS (109)
  1. RITUXIMAB [Suspect]
     Active Substance: RITUXIMAB
     Indication: Follicular lymphoma
     Dosage: 1Q4W (DOSE FORM: 15)
     Route: 042
     Dates: start: 20210308, end: 20210705
  2. RITUXIMAB [Suspect]
     Active Substance: RITUXIMAB
     Dosage: 375 MG/M2, EVERY 4 WEEKS (LAST DOSE PRIOR TO SAE: 05/JUL/2021)
     Route: 042
     Dates: start: 20210308
  3. RITUXIMAB [Suspect]
     Active Substance: RITUXIMAB
     Dosage: 1Q4W
     Route: 042
     Dates: start: 20210308, end: 20210705
  4. RITUXIMAB [Suspect]
     Active Substance: RITUXIMAB
     Dosage: 1Q4W (DOSE FORM: 243)
     Route: 042
     Dates: start: 20210308, end: 20210705
  5. RITUXIMAB [Suspect]
     Active Substance: RITUXIMAB
     Dosage: 375 MG EVERY 4 WEEKS
     Route: 042
     Dates: start: 20210308, end: 20210705
  6. RITUXIMAB [Suspect]
     Active Substance: RITUXIMAB
     Dosage: 375 MG/M2
     Route: 042
     Dates: start: 20210705
  7. BENDAMUSTINE [Suspect]
     Active Substance: BENDAMUSTINE
     Indication: Follicular lymphoma
     Dosage: PHARMACEUTICAL DOSE FORM: 356
     Route: 042
     Dates: start: 20210308, end: 20210309
  8. BENDAMUSTINE [Suspect]
     Active Substance: BENDAMUSTINE
     Dosage: DOSE FORM: 243
     Route: 042
     Dates: start: 20210308, end: 20210309
  9. BENDAMUSTINE [Suspect]
     Active Substance: BENDAMUSTINE
     Dosage: DOSE FORM: 243
     Route: 042
     Dates: start: 20210406, end: 20210407
  10. BENDAMUSTINE [Suspect]
     Active Substance: BENDAMUSTINE
     Dosage: PHARMACEUTICAL DOSE FORM: 356
     Route: 042
     Dates: start: 20210406, end: 20210407
  11. BENDAMUSTINE [Suspect]
     Active Substance: BENDAMUSTINE
     Dosage: DOSE FORM: 243
     Route: 042
     Dates: start: 20210504, end: 20210505
  12. BENDAMUSTINE [Suspect]
     Active Substance: BENDAMUSTINE
     Dosage: PHARMACEUTICAL DOSE FORM: 356
     Route: 042
     Dates: start: 20210504, end: 20210505
  13. BENDAMUSTINE [Suspect]
     Active Substance: BENDAMUSTINE
     Dosage: PHARMACEUTICAL DOSE FORM: 356
     Route: 042
     Dates: start: 20210607, end: 20210608
  14. BENDAMUSTINE [Suspect]
     Active Substance: BENDAMUSTINE
     Dosage: DOSE FORM: 243
     Route: 042
     Dates: start: 20210607, end: 20210608
  15. BENDAMUSTINE [Suspect]
     Active Substance: BENDAMUSTINE
     Dosage: DOSE FORM: 243
     Route: 042
     Dates: start: 20210705, end: 20210706
  16. BENDAMUSTINE [Suspect]
     Active Substance: BENDAMUSTINE
     Dosage: PHARMACEUTICAL DOSE FORM: 356
     Route: 042
     Dates: start: 20210705, end: 20210706
  17. BENDAMUSTINE [Suspect]
     Active Substance: BENDAMUSTINE
     Dosage: 90 MG/M2
     Route: 042
     Dates: start: 20210706
  18. BENDAMUSTINE [Suspect]
     Active Substance: BENDAMUSTINE
     Indication: Follicular lymphoma
     Dosage: 90 MG/M2
     Route: 042
     Dates: start: 20210308, end: 20210308
  19. BENDAMUSTINE [Suspect]
     Active Substance: BENDAMUSTINE
     Dosage: 90 MG/M2
     Route: 042
     Dates: start: 20210309, end: 20210309
  20. BENDAMUSTINE [Suspect]
     Active Substance: BENDAMUSTINE
     Dosage: 90 MG/M2
     Route: 042
     Dates: start: 20210406, end: 20210406
  21. BENDAMUSTINE [Suspect]
     Active Substance: BENDAMUSTINE
     Dosage: 90 MG/M2
     Route: 042
     Dates: start: 20210407, end: 20210407
  22. BENDAMUSTINE [Suspect]
     Active Substance: BENDAMUSTINE
     Dosage: 90 MG/M2
     Route: 042
     Dates: start: 20210504, end: 20210504
  23. BENDAMUSTINE [Suspect]
     Active Substance: BENDAMUSTINE
     Dosage: 90 MG/M2
     Route: 042
     Dates: start: 20210505, end: 20210505
  24. BENDAMUSTINE [Suspect]
     Active Substance: BENDAMUSTINE
     Dosage: 90 MG/M2
     Route: 042
     Dates: start: 20210607, end: 20210607
  25. BENDAMUSTINE [Suspect]
     Active Substance: BENDAMUSTINE
     Dosage: 90 MG/M2
     Route: 042
     Dates: start: 20210608, end: 20210608
  26. BENDAMUSTINE [Suspect]
     Active Substance: BENDAMUSTINE
     Dosage: 90 MG/M2
     Route: 042
     Dates: start: 20210705, end: 20210705
  27. BENDAMUSTINE [Suspect]
     Active Substance: BENDAMUSTINE
     Dosage: 90 MG/M2
     Route: 042
     Dates: start: 20210706, end: 20210706
  28. BENDAMUSTINE [Suspect]
     Active Substance: BENDAMUSTINE
     Indication: Follicular lymphoma
     Dosage: UNK
     Route: 042
     Dates: start: 20210406, end: 20210407
  29. BENDAMUSTINE [Suspect]
     Active Substance: BENDAMUSTINE
     Dosage: UNK
     Route: 042
     Dates: start: 20210308, end: 20210309
  30. BENDAMUSTINE [Suspect]
     Active Substance: BENDAMUSTINE
     Dosage: UNK
     Route: 042
     Dates: start: 20210607, end: 20210608
  31. BENDAMUSTINE [Suspect]
     Active Substance: BENDAMUSTINE
     Dosage: UNK
     Route: 042
     Dates: start: 20210504, end: 20210505
  32. BENDAMUSTINE [Suspect]
     Active Substance: BENDAMUSTINE
     Dosage: UNK
     Route: 042
     Dates: start: 20210705, end: 20210706
  33. BENDAMUSTINE [Suspect]
     Active Substance: BENDAMUSTINE
     Dosage: UNK
     Route: 042
     Dates: start: 20210406, end: 20210407
  34. EPCORITAMAB [Suspect]
     Active Substance: EPCORITAMAB
     Indication: Follicular lymphoma
     Dosage: 24 MG, EVERY 2 WEEKS (FULL DOSE, CYCLE 4-9; DOSE FORM: 15)
     Route: 058
     Dates: start: 20210607, end: 20210719
  35. EPCORITAMAB [Suspect]
     Active Substance: EPCORITAMAB
     Dosage: 0.16 MG, EVERY 1 DAYS (PRIMING DOSE, SINGLE; DOSE FORM: 15; CUMULATIVE DOSE: 21.27 MG)
     Route: 058
     Dates: start: 20210308, end: 20210308
  36. EPCORITAMAB [Suspect]
     Active Substance: EPCORITAMAB
     Dosage: 0.8 MG, EVERY 1 DAYS (INTERMEDIATE DOSE, SINGLE; DOSE FORM: 15; CMULATIVE DOSE: 100.76666 MG0
     Route: 058
     Dates: start: 20210315, end: 20210315
  37. EPCORITAMAB [Suspect]
     Active Substance: EPCORITAMAB
     Dosage: 24 MG, 1 EVERY 1 WEEK (FULL DOSE, CYCLE 1-3; DOSE FORM: 15; CUMULATIVE DOSE: 407.85715 MG)
     Route: 058
     Dates: start: 20210322, end: 20210527
  38. EPCORITAMAB [Suspect]
     Active Substance: EPCORITAMAB
     Dosage: 24 MG
     Dates: start: 20210719
  39. EPCORITAMAB [Suspect]
     Active Substance: EPCORITAMAB
     Indication: Follicular lymphoma
     Dosage: 48 MG, EVERY 1 WEEK (24 MG, 2X/WEEK, FULL DOSE, CYCLE 4-9)
     Route: 058
     Dates: start: 20210607, end: 20210719
  40. EPCORITAMAB [Suspect]
     Active Substance: EPCORITAMAB
     Dosage: 24 MG, EVERY 1 WEEK (24 MG, WEEKLY, FULL DOSE, CYCLE 1-3)
     Route: 058
     Dates: start: 20210322, end: 20210527
  41. EPCORITAMAB [Suspect]
     Active Substance: EPCORITAMAB
     Dosage: 0.8 MG, EVERY 1 DAY (0.8 MG, 1X/DAY, INTERMEDIATE DOSE, SINGLE)
     Route: 058
     Dates: start: 20210315, end: 20210315
  42. EPCORITAMAB [Suspect]
     Active Substance: EPCORITAMAB
     Dosage: 0.16 MG, EVERY 1 DAYS (0.16 MG, 1X/DAY, PRIMING DOSE, SINGLE)
     Route: 058
     Dates: start: 20210308, end: 20210308
  43. EPCORITAMAB [Suspect]
     Active Substance: EPCORITAMAB
     Indication: Follicular lymphoma
     Dosage: 0.16 MG,, EVERY 1 DAY (PRIMING DOSE, SINGLE; DOSE FOMR: 243)
     Route: 058
     Dates: start: 20210308, end: 20210308
  44. EPCORITAMAB [Suspect]
     Active Substance: EPCORITAMAB
     Dosage: 24 MG, 1 EVERY 1 WEEK (FULL DOSE, CYCLE 1-3; DOSE FORM: 243)
     Route: 058
     Dates: start: 20210322, end: 20210527
  45. EPCORITAMAB [Suspect]
     Active Substance: EPCORITAMAB
     Dosage: 0.8 MG, EVERY 1 DAY (INTERMEDIATE DOSE, SINGLE; DOSE FORM: 243)
     Route: 058
     Dates: start: 20210315, end: 20210315
  46. EPCORITAMAB [Suspect]
     Active Substance: EPCORITAMAB
     Dosage: 24 MG, EVERY 2 WEEK (FULL DOSE, CYCLE 4-9; DOSE FORM: 243)
     Route: 058
     Dates: start: 20210607, end: 20210719
  47. EPCORITAMAB [Suspect]
     Active Substance: EPCORITAMAB
     Indication: Follicular lymphoma
     Dosage: 24 MG, EVERY 1 WEEK
     Route: 058
     Dates: start: 20210322, end: 20210527
  48. EPCORITAMAB [Suspect]
     Active Substance: EPCORITAMAB
     Dosage: EVERY 2 WEEKS
     Route: 058
     Dates: start: 20210607, end: 20210719
  49. EPCORITAMAB [Suspect]
     Active Substance: EPCORITAMAB
     Dosage: 0.8 MG, EVERY 1 DAY
     Route: 058
     Dates: start: 20210315, end: 20210315
  50. EPCORITAMAB [Suspect]
     Active Substance: EPCORITAMAB
     Dosage: 0.16 MG, EVERY 1 DAY
     Route: 065
     Dates: start: 20210308, end: 20210308
  51. AMOXICILLIN [Concomitant]
     Active Substance: AMOXICILLIN
     Indication: Prophylaxis
     Dosage: UNK
     Route: 065
     Dates: start: 20210714, end: 20210715
  52. CLAVULANIC ACID [Concomitant]
     Active Substance: CLAVULANIC ACID
     Indication: Prophylaxis
     Dosage: UNK
     Route: 065
     Dates: start: 20210714, end: 20210715
  53. METHYLPREDNISOLONE [Concomitant]
     Active Substance: METHYLPREDNISOLONE
     Indication: Prophylaxis
     Dosage: UNK
     Route: 065
     Dates: start: 20210406, end: 20210406
  54. METHYLPREDNISOLONE [Concomitant]
     Active Substance: METHYLPREDNISOLONE
     Dosage: 80 MG PHARMACEUTICAL DOSE FORM: 243
     Route: 042
     Dates: start: 20210308, end: 20210308
  55. METHYLPREDNISOLONE [Concomitant]
     Active Substance: METHYLPREDNISOLONE
     Dosage: UNK
     Dates: start: 20210308, end: 20210406
  56. METHYLPREDNISOLONE [Concomitant]
     Active Substance: METHYLPREDNISOLONE
     Dosage: 80 MG
     Route: 042
     Dates: start: 20210406, end: 20210406
  57. METHYLPREDNISOLONE [Concomitant]
     Active Substance: METHYLPREDNISOLONE
     Dosage: 80 MG
     Route: 042
     Dates: start: 20210308, end: 20210308
  58. PIPERACILLIN AND TAZOBACTAM [Concomitant]
     Active Substance: PIPERACILLIN SODIUM\TAZOBACTAM SODIUM
     Indication: Prophylaxis
     Dosage: UNK
     Route: 065
     Dates: start: 20210713, end: 20210714
  59. PREDNISOLONE [Concomitant]
     Active Substance: PREDNISOLONE
     Dosage: UNK
     Route: 065
     Dates: start: 20210309, end: 20210311
  60. PREDNISOLONE [Concomitant]
     Active Substance: PREDNISOLONE
     Dosage: 100 MG
     Route: 048
     Dates: start: 20210607, end: 20210705
  61. PREDNISOLONE [Concomitant]
     Active Substance: PREDNISOLONE
     Dosage: 100 MG (DOSE FORM: 243)
     Route: 048
     Dates: start: 20210309, end: 20210311
  62. PREDNISOLONE [Concomitant]
     Active Substance: PREDNISOLONE
     Dosage: UNK
     Dates: start: 20210309, end: 20210705
  63. SOLU-MEDROL [Concomitant]
     Active Substance: METHYLPREDNISOLONE SODIUM SUCCINATE
     Dosage: UNK
     Dates: start: 20210308, end: 20210406
  64. PIPERACILLIN AND TAZOBACTAM [Concomitant]
     Active Substance: PIPERACILLIN SODIUM\TAZOBACTAM SODIUM
     Dosage: UNK
     Dates: start: 20210713, end: 20210714
  65. BIOCLAVID [Concomitant]
     Active Substance: AMOXICILLIN\CLAVULANIC ACID
     Dosage: UNK
     Dates: start: 20210714, end: 20210715
  66. PREDNISOLONE [Concomitant]
     Active Substance: PREDNISOLONE
     Dosage: UNK
     Dates: start: 20210309, end: 20210705
  67. PREDNISOLONE [Concomitant]
     Active Substance: PREDNISOLONE
     Dosage: 100 MG
     Route: 048
     Dates: start: 20210607, end: 20210705
  68. PREDNISOLONE [Concomitant]
     Active Substance: PREDNISOLONE
     Dosage: 100 MG
     Route: 048
     Dates: start: 20210309, end: 20210311
  69. AMOXICILLIN\CLAVULANIC ACID [Concomitant]
     Active Substance: AMOXICILLIN\CLAVULANIC ACID
     Indication: Prophylaxis
     Dosage: UNK
     Dates: start: 20210714, end: 20210715
  70. PIPERACILLIN AND TAZOBACTAM [Concomitant]
     Active Substance: PIPERACILLIN SODIUM\TAZOBACTAM SODIUM
     Indication: Prophylaxis
     Dosage: UNK
     Route: 065
     Dates: start: 20210713, end: 20210714
  71. AMOXICILLIN\CLAVULANIC ACID [Concomitant]
     Active Substance: AMOXICILLIN\CLAVULANIC ACID
     Indication: Prophylaxis
     Dosage: UNK
     Route: 065
     Dates: start: 20210714, end: 20210715
  72. CALCIUM\CHOLECALCIFEROL [Concomitant]
     Active Substance: CALCIUM\CHOLECALCIFEROL
     Dosage: PHARMACEUTICAL DOSE FORM: 243
     Route: 065
     Dates: start: 20210504
  73. CLEMASTINE [Concomitant]
     Active Substance: CLEMASTINE
     Dosage: UNK
     Route: 065
     Dates: start: 20210509
  74. DAPSONE [Concomitant]
     Active Substance: DAPSONE
     Dosage: UNK
     Route: 065
     Dates: start: 20210607
  75. VILANTEROL [Concomitant]
     Active Substance: VILANTEROL
     Dosage: UNK
     Route: 065
     Dates: start: 20210708
  76. FLUTICASONE [Concomitant]
     Active Substance: FLUTICASONE
     Dosage: UNK
     Route: 065
     Dates: start: 20210708
  77. FLUTICASONE [Concomitant]
     Active Substance: FLUTICASONE
     Dosage: UNK
     Route: 065
     Dates: start: 20210708
  78. FUROSEMIDE [Concomitant]
     Active Substance: FUROSEMIDE
     Dosage: UNK
     Route: 065
     Dates: start: 20210308
  79. HYDROCORTISONE [Concomitant]
     Active Substance: HYDROCORTISONE
     Dosage: UNK
     Route: 065
     Dates: start: 20210721, end: 20210721
  80. HYDROCORTISONE [Concomitant]
     Active Substance: HYDROCORTISONE
     Dosage: UNK
     Route: 065
     Dates: start: 20210715
  81. MICONAZOLE NITRATE [Concomitant]
     Active Substance: MICONAZOLE NITRATE
     Dosage: UNK
     Route: 065
     Dates: start: 20210715, end: 20211004
  82. MICONAZOLE NITRATE [Concomitant]
     Active Substance: MICONAZOLE NITRATE
     Dosage: UNK
     Route: 065
     Dates: start: 20210715
  83. POTASSIUM CHLORIDE [Concomitant]
     Active Substance: POTASSIUM CHLORIDE
     Dosage: UNK
     Route: 065
     Dates: start: 20210308
  84. POTASSIUM CHLORIDE [Concomitant]
     Active Substance: POTASSIUM CHLORIDE
     Dosage: UNK
     Route: 065
     Dates: start: 20210712
  85. LOPERAMIDE [Concomitant]
     Active Substance: LOPERAMIDE
     Dosage: UNK
     Route: 065
     Dates: start: 20210518
  86. SODIUM CHLORIDE [Concomitant]
     Active Substance: SODIUM CHLORIDE
     Dosage: UNK
     Route: 065
     Dates: start: 20210712
  87. SODIUM CHLORIDE [Concomitant]
     Active Substance: SODIUM CHLORIDE
     Dosage: UNK
     Route: 065
     Dates: start: 20210712
  88. POLYETHYLENE GLYCOL 3350 [Concomitant]
     Active Substance: POLYETHYLENE GLYCOL 3350
     Dosage: UNK
     Route: 065
     Dates: start: 20210712
  89. POLYETHYLENE GLYCOL 3350 [Concomitant]
     Active Substance: POLYETHYLENE GLYCOL 3350
     Dosage: UNK
     Route: 065
     Dates: start: 20210712
  90. SODIUM BICARBONATE [Concomitant]
     Active Substance: SODIUM BICARBONATE
     Dosage: UNK
     Route: 065
     Dates: start: 20210712
  91. SODIUM BICARBONATE [Concomitant]
     Active Substance: SODIUM BICARBONATE
     Dosage: UNK
     Route: 065
     Dates: start: 20210712
  92. METOCLOPRAMIDE [Concomitant]
     Active Substance: METOCLOPRAMIDE
     Dosage: UNK
     Route: 065
     Dates: start: 20210509
  93. ONDANSETRON [Concomitant]
     Active Substance: ONDANSETRON
     Dosage: UNK
     Route: 065
     Dates: start: 20210509
  94. ONDANSETRON [Concomitant]
     Active Substance: ONDANSETRON
     Dosage: UNK
     Route: 065
     Dates: start: 20210509
  95. OMEPRAZOLE [Concomitant]
     Active Substance: OMEPRAZOLE
     Dosage: UNK
     Route: 065
     Dates: start: 20210719, end: 20210726
  96. ACETAMINOPHEN [Concomitant]
     Active Substance: ACETAMINOPHEN
     Dosage: UNK
     Route: 065
     Dates: start: 20210308
  97. PRAMIPEXOLE [Concomitant]
     Active Substance: PRAMIPEXOLE
     Dosage: UNK
     Route: 065
     Dates: start: 20120823
  98. ALBUTEROL [Concomitant]
     Active Substance: ALBUTEROL
     Dosage: UNK
     Route: 065
     Dates: start: 20210708
  99. VALGANCICLOVIR [Concomitant]
     Active Substance: VALGANCICLOVIR
     Indication: Prophylaxis
     Dosage: UNK
     Route: 065
     Dates: start: 20210721, end: 20211021
  100. VALGANCICLOVIR [Concomitant]
     Active Substance: VALGANCICLOVIR
     Dosage: UNK
     Dates: start: 20210721
  101. HYDROCORTISONE;MICONAZOLE [Concomitant]
     Dosage: UNK
     Dates: start: 20210715, end: 20211004
  102. POLYETHYLENE GLYCOL 3350\POTASSIUM CHLORIDE\SODIUM BICARBONATE\SODIUM [Concomitant]
     Active Substance: POLYETHYLENE GLYCOL 3350\POTASSIUM CHLORIDE\SODIUM BICARBONATE\SODIUM CHLORIDE
     Dosage: UNK
     Dates: start: 20210712
  103. FLUTICASONE FUROATE\VILANTEROL TRIFENATATE [Concomitant]
     Active Substance: FLUTICASONE FUROATE\VILANTEROL TRIFENATATE
     Dosage: UNK
     Dates: start: 20210708
  104. KALIUMKLORID [Concomitant]
     Dosage: UNK
     Dates: start: 20210308
  105. CALCIUM\CHOLECALCIFEROL [Concomitant]
     Active Substance: CALCIUM\CHOLECALCIFEROL
     Dosage: UNK
     Dates: start: 20210504
  106. METOCLOPRAMIDE;ONDANSETRON [Concomitant]
     Dosage: UNK
     Dates: start: 20210509
  107. AMOXICILLIN\CLAVULANIC ACID [Concomitant]
     Active Substance: AMOXICILLIN\CLAVULANIC ACID
     Indication: Prophylaxis
     Dosage: UNK
     Dates: start: 20210714, end: 20210715
  108. AMOXICILLIN\CLAVULANATE POTASSIUM [Concomitant]
     Active Substance: AMOXICILLIN\CLAVULANATE POTASSIUM
     Dosage: UNK
     Dates: start: 20210714, end: 20210715
  109. HYDROCORTISONE;MICONAZOLE [Concomitant]
     Dosage: UNK
     Dates: start: 20210715, end: 20211004

REACTIONS (2)
  - Cytomegalovirus test positive [Not Recovered/Not Resolved]
  - Cytomegalovirus infection [Recovered/Resolved]

NARRATIVE: CASE EVENT DATE: 20210719
